FAERS Safety Report 7744793-4 (Version None)
Quarter: 2011Q3

REPORT INFORMATION
  Report Type: 
  Country: None (occurrence: None)
  Receive Date: 20110912
  Receipt Date: 20110912
  Transmission Date: 20111222
  Serious: Yes (Other)
  Sender: FDA-Public Use
  Company Number: None

PATIENT
  Age: 53 Year
  Sex: Female
  Weight: 126.09 kg

DRUGS (1)
  1. BACTRIM [Suspect]
     Indication: URINARY TRACT INFECTION
     Dosage: 2 TABS
     Route: 048
     Dates: start: 20110901, end: 20110906

REACTIONS (3)
  - BURNING SENSATION [None]
  - DISCOMFORT [None]
  - FEELING ABNORMAL [None]
